FAERS Safety Report 10158375 (Version 1)
Quarter: 2014Q2

REPORT INFORMATION
  Report Type: Spontaneous
  Country: US (occurrence: US)
  Receive Date: 20140507
  Receipt Date: 20140507
  Transmission Date: 20141212
  Serious: No
  Sender: FDA-Public Use
  Company Number: US-009507513-2012SP016851

PATIENT
  Sex: Female

DRUGS (3)
  1. CLARITIN [Suspect]
     Indication: PRODUCT USED FOR UNKNOWN INDICATION
     Dosage: 10 MG, QPM
     Route: 048
     Dates: start: 201202
  2. CLARITIN [Suspect]
     Indication: MEDICAL OBSERVATION
     Dosage: 10 MG, QPM
     Route: 048
     Dates: start: 20120305
  3. CLARITIN [Suspect]
     Dosage: 10 MG, QAM
     Route: 048
     Dates: start: 20120306

REACTIONS (1)
  - Overdose [Unknown]
